FAERS Safety Report 5404359-8 (Version None)
Quarter: 2007Q3

REPORT INFORMATION
  Report Type: 
  Country: None (occurrence: None)
  Receive Date: 20070711
  Receipt Date: 20070423
  Transmission Date: 20080115
  Serious: Yes (Hospitalization, Other)
  Sender: FDA-Public Use
  Company Number: 250510

PATIENT
  Age: 55 Year
  Sex: Female
  Weight: 62.1 kg

DRUGS (10)
  1. ACTIVELLA [Suspect]
     Indication: HORMONE REPLACEMENT THERAPY
     Dates: start: 20010601, end: 20020601
  2. PREMPRO [Suspect]
     Indication: HORMONE REPLACEMENT THERAPY
     Dosage: 0.625 MG / 2.5 MG
     Dates: start: 19960101, end: 20010601
  3. ESTRATEST [Suspect]
     Indication: HORMONE REPLACEMENT THERAPY
     Dates: start: 19991101, end: 20020601
  4. MEDROXYPROGESTERONE ACETATE [Concomitant]
  5. PROVERA [Concomitant]
  6. ESTRACE [Concomitant]
  7. ESTRING [Concomitant]
  8. SERZONE [Concomitant]
  9. EFFEXOR XR [Concomitant]
  10. XANAX [Concomitant]

REACTIONS (1)
  - BREAST CANCER [None]
